FAERS Safety Report 16679690 (Version 4)
Quarter: 2019Q4

REPORT INFORMATION
  Report Type: Spontaneous
  Country: US (occurrence: US)
  Receive Date: 20190807
  Receipt Date: 20191101
  Transmission Date: 20200122
  Serious: Yes (Hospitalization, Other)
  Sender: FDA-Public Use
  Company Number: US-PFIZER INC-2019333749

PATIENT
  Age: 36 Year
  Sex: Female
  Weight: 102 kg

DRUGS (3)
  1. LIPITOR [Suspect]
     Active Substance: ATORVASTATIN CALCIUM
     Indication: BLOOD CHOLESTEROL INCREASED
     Dosage: 20 MG, 1X/DAY
     Route: 048
     Dates: start: 201802, end: 2018
  2. LIPITOR [Suspect]
     Active Substance: ATORVASTATIN CALCIUM
     Dosage: 20 MG, DAILY
     Route: 048
     Dates: start: 20181118, end: 20181123
  3. METFORMIN [Suspect]
     Active Substance: METFORMIN HYDROCHLORIDE
     Dosage: 500 MG, 3X/DAY
     Dates: start: 201811, end: 201811

REACTIONS (28)
  - Hepatic necrosis [Not Recovered/Not Resolved]
  - Deep vein thrombosis [Unknown]
  - Pancreatitis [Recovered/Resolved]
  - Nausea [Recovered/Resolved]
  - Headache [Recovered/Resolved]
  - Splenic necrosis [Not Recovered/Not Resolved]
  - Renal disorder [Not Recovered/Not Resolved]
  - Pancreatic necrosis [Not Recovered/Not Resolved]
  - Pulmonary embolism [Unknown]
  - Diarrhoea [Not Recovered/Not Resolved]
  - Decreased appetite [Not Recovered/Not Resolved]
  - Hepatic steatosis [Not Recovered/Not Resolved]
  - Influenza like illness [Recovered/Resolved]
  - Amnesia [Not Recovered/Not Resolved]
  - Pancreatic abscess [Not Recovered/Not Resolved]
  - Vomiting [Recovered/Resolved]
  - Nephrolithiasis [Not Recovered/Not Resolved]
  - Gastrointestinal disorder [Unknown]
  - Pulmonary necrosis [Not Recovered/Not Resolved]
  - Abdominal distension [Recovered/Resolved]
  - Type 2 diabetes mellitus [Not Recovered/Not Resolved]
  - Weight increased [Recovered/Resolved]
  - Hepatic failure [Recovered/Resolved]
  - Hepatic lesion [Not Recovered/Not Resolved]
  - Visual impairment [Recovered/Resolved]
  - Pancreatic pseudocyst [Not Recovered/Not Resolved]
  - Thrombosis [Recovered/Resolved]
  - Nerve injury [Not Recovered/Not Resolved]

NARRATIVE: CASE EVENT DATE: 20180227
